FAERS Safety Report 12245110 (Version 3)
Quarter: 2016Q3

REPORT INFORMATION
  Report Type: Spontaneous
  Country: US (occurrence: US)
  Receive Date: 20160407
  Receipt Date: 20160825
  Transmission Date: 20161109
  Serious: Yes (Other)
  Sender: FDA-Public Use
  Company Number: US-TEVA-627559USA

PATIENT
  Age: 49 Year
  Sex: Female

DRUGS (16)
  1. ALBUTEROL. [Concomitant]
     Active Substance: ALBUTEROL
  2. ZECUITY [Suspect]
     Active Substance: SUMATRIPTAN SUCCINATE
     Indication: HEADACHE
     Dosage: 6.5 MG / 4 HOURS
     Route: 062
     Dates: start: 20151226, end: 20151226
  3. TENORMIN [Concomitant]
     Active Substance: ATENOLOL
  4. CYTOMEL [Concomitant]
     Active Substance: LIOTHYRONINE SODIUM
  5. KETOPROFEN. [Concomitant]
     Active Substance: KETOPROFEN
  6. REGLAN [Concomitant]
     Active Substance: METOCLOPRAMIDE HYDROCHLORIDE
  7. ZECUITY [Suspect]
     Active Substance: SUMATRIPTAN SUCCINATE
     Dates: end: 201603
  8. NUVARING [Concomitant]
     Active Substance: ETHINYL ESTRADIOL\ETONOGESTREL
  9. ZOFRAN [Concomitant]
     Active Substance: ONDANSETRON HYDROCHLORIDE
  10. ZONEGRAN [Concomitant]
     Active Substance: ZONISAMIDE
  11. ZECUITY [Suspect]
     Active Substance: SUMATRIPTAN SUCCINATE
     Route: 062
     Dates: start: 20151229, end: 20151229
  12. ZANAFLEX [Concomitant]
     Active Substance: TIZANIDINE HYDROCHLORIDE
  13. ZECUITY [Suspect]
     Active Substance: SUMATRIPTAN SUCCINATE
     Route: 062
     Dates: start: 20160112, end: 20160112
  14. SYNTHROID [Concomitant]
     Active Substance: LEVOTHYROXINE SODIUM
  15. PHENERGAN [Concomitant]
     Active Substance: PROMETHAZINE HYDROCHLORIDE
  16. ZANTAC [Concomitant]
     Active Substance: RANITIDINE HYDROCHLORIDE

REACTIONS (19)
  - Application site irritation [Unknown]
  - Application site discomfort [Unknown]
  - Application site burn [Not Recovered/Not Resolved]
  - Application site pruritus [Unknown]
  - Application site vesicles [Unknown]
  - Application site scab [Unknown]
  - Application site scar [Not Recovered/Not Resolved]
  - Application site erythema [Recovered/Resolved]
  - Application site paraesthesia [Unknown]
  - Application site papules [Unknown]
  - Hypersensitivity [Not Recovered/Not Resolved]
  - Infection [Recovered/Resolved]
  - Mast cell activation syndrome [Not Recovered/Not Resolved]
  - Application site urticaria [Unknown]
  - Application site warmth [Unknown]
  - Feeling abnormal [Unknown]
  - Application site discolouration [Not Recovered/Not Resolved]
  - Product leakage [Unknown]
  - Application site pain [Recovered/Resolved]

NARRATIVE: CASE EVENT DATE: 20151226
